FAERS Safety Report 14666933 (Version 1)
Quarter: 2018Q1

REPORT INFORMATION
  Report Type: Spontaneous
  Country: US (occurrence: US)
  Receive Date: 20180322
  Receipt Date: 20180322
  Transmission Date: 20180509
  Serious: No
  Sender: FDA-Public Use
  Company Number: US-009507513-1803USA005693

PATIENT
  Sex: Male

DRUGS (1)
  1. NASONEX [Suspect]
     Active Substance: MOMETASONE FUROATE
     Dosage: PACKAGE SIZE: 17G
     Route: 045
     Dates: start: 20180305

REACTIONS (2)
  - Accidental overdose [Unknown]
  - Product quality issue [Unknown]

NARRATIVE: CASE EVENT DATE: 20180305
